FAERS Safety Report 6257552-9 (Version None)
Quarter: 2009Q3

REPORT INFORMATION
  Report Type: 
  Country: None (occurrence: None)
  Receive Date: 20090706
  Receipt Date: 20090625
  Transmission Date: 20100115
  Serious: Yes (Hospitalization, Other)
  Sender: FDA-Public Use
  Company Number: PHHY2009GB04688

PATIENT
  Sex: Male

DRUGS (8)
  1. CLOZARIL [Interacting]
     Indication: SCHIZOPHRENIA, PARANOID TYPE
     Dosage: 300 MG/DAY
     Route: 048
     Dates: start: 20060810, end: 20090206
  2. CLOZARIL [Interacting]
     Dosage: 25 MG, BID
     Dates: start: 20090309
  3. CLOZARIL [Interacting]
     Dosage: 125 MG/DAY
  4. VALPROATE SODIUM [Suspect]
  5. FLUVOXAMINE MALEATE [Interacting]
     Indication: OBSESSIVE-COMPULSIVE DISORDER
     Dosage: 100 MG/DAY
     Route: 048
     Dates: start: 20081101, end: 20090201
  6. OMEPRAZOLE [Concomitant]
     Indication: GASTROOESOPHAGEAL REFLUX DISEASE
     Dosage: 20 MG/DAY
     Route: 048
  7. FYBOGEL [Concomitant]
  8. NULYTELY [Concomitant]

REACTIONS (13)
  - ANTIPSYCHOTIC DRUG LEVEL INCREASED [None]
  - BLOOD SODIUM INCREASED [None]
  - BLOOD UREA INCREASED [None]
  - DIZZINESS [None]
  - DRUG INTERACTION [None]
  - FACE OEDEMA [None]
  - HAEMORRHOIDS [None]
  - HEART RATE DECREASED [None]
  - MENTAL IMPAIRMENT [None]
  - PSYCHOTIC DISORDER [None]
  - RENAL IMPAIRMENT [None]
  - SOMNOLENCE [None]
  - TREATMENT NONCOMPLIANCE [None]
